FAERS Safety Report 7534274-5 (Version None)
Quarter: 2011Q2

REPORT INFORMATION
  Report Type: 
  Country: None (occurrence: None)
  Receive Date: 20110608
  Receipt Date: 20070223
  Transmission Date: 20111010
  Serious: Yes (Death)
  Sender: FDA-Public Use
  Company Number: PHFR2006GB03171

PATIENT
  Sex: Female

DRUGS (3)
  1. CLOZAPINE [Suspect]
     Indication: SCHIZOPHRENIA
     Route: 048
     Dates: start: 19950711
  2. VENLAFAXINE [Concomitant]
     Indication: DEPRESSION
     Dosage: 150 MG, DAILY
     Route: 048
  3. AMISULPRIDE [Concomitant]
     Dosage: 200 MG, NOCTE
     Route: 048

REACTIONS (1)
  - PULMONARY EMBOLISM [None]
